FAERS Safety Report 7872668-9 (Version None)
Quarter: 2011Q4

REPORT INFORMATION
  Report Type: 
  Country: None (occurrence: None)
  Receive Date: 20111030
  Receipt Date: 20110502
  Transmission Date: 20120403
  Serious: No
  Sender: FDA-Public Use
  Company Number: US-AMGEN-USASP2011022697

PATIENT
  Age: 55 Year
  Sex: Female

DRUGS (1)
  1. ENBREL [Suspect]
     Indication: PRODUCT USED FOR UNKNOWN INDICATION
     Dates: start: 20110218

REACTIONS (9)
  - PAIN IN EXTREMITY [None]
  - MUSCULAR WEAKNESS [None]
  - BACK PAIN [None]
  - ARTHRALGIA [None]
  - DEVICE MALFUNCTION [None]
  - PAIN [None]
  - INJECTION SITE STREAKING [None]
  - BURNING SENSATION [None]
  - PHLEBITIS [None]
